FAERS Safety Report 26025210 (Version 3)
Quarter: 2025Q4

REPORT INFORMATION
  Report Type: Report from Study
  Country: US (occurrence: US)
  Receive Date: 20251111
  Receipt Date: 20251216
  Transmission Date: 20260118
  Serious: No
  Sender: SANDOZ
  Company Number: US-SANDOZ-SDZ2025US082768

PATIENT
  Sex: Female

DRUGS (4)
  1. OMNITROPE [Suspect]
     Active Substance: SOMATROPIN
     Indication: Hypopituitarism
     Dosage: 1.3 MG, QD
     Route: 058
     Dates: start: 20251102
  2. OMNITROPE [Suspect]
     Active Substance: SOMATROPIN
     Indication: Hypopituitarism
     Dosage: 1.3 MG, QD
     Route: 058
     Dates: start: 20251102
  3. OMNITROPE [Suspect]
     Active Substance: SOMATROPIN
     Dosage: 1.3 MG, QD
     Route: 058
     Dates: start: 20251104
  4. OMNITROPE [Suspect]
     Active Substance: SOMATROPIN
     Dosage: 1.3 MG, QD
     Route: 058
     Dates: start: 20251104

REACTIONS (3)
  - Incorrect dose administered by device [Unknown]
  - Poor quality device used [Unknown]
  - Device leakage [Unknown]

NARRATIVE: CASE EVENT DATE: 20250101
